FAERS Safety Report 7031035-0 (Version None)
Quarter: 2010Q4

REPORT INFORMATION
  Report Type: 
  Country: None (occurrence: None)
  Receive Date: 20101006
  Receipt Date: 20100830
  Transmission Date: 20110411
  Serious: Yes (Death)
  Sender: FDA-Public Use
  Company Number: US-CEPHALON-2010004617

PATIENT
  Age: 43 Year
  Sex: Male

DRUGS (3)
  1. AMRIX [Suspect]
     Route: 048
  2. ACETAMINOPHEN [Suspect]
  3. ORPHENADRINE CITRATE [Suspect]

REACTIONS (2)
  - COMPLETED SUICIDE [None]
  - INTENTIONAL OVERDOSE [None]
